FAERS Safety Report 7640898-7 (Version None)
Quarter: 2011Q3

REPORT INFORMATION
  Report Type: 
  Country: None (occurrence: None)
  Receive Date: 20110728
  Receipt Date: 20110728
  Transmission Date: 20111222
  Serious: Yes (Life-Threatening, Other)
  Sender: FDA-Public Use
  Company Number: None

PATIENT
  Sex: Female
  Weight: 83.461 kg

DRUGS (2)
  1. FENTANYL-100 [Suspect]
     Indication: FIBROMYALGIA
     Dosage: 25 MCG/H
     Route: 062
     Dates: start: 20110518, end: 20110608
  2. FENTANYL-100 [Concomitant]
     Dosage: 50 MCG/H
     Route: 062
     Dates: start: 20110609, end: 20110713

REACTIONS (16)
  - LOSS OF CONSCIOUSNESS [None]
  - INCORRECT DOSE ADMINISTERED BY DEVICE [None]
  - CONFUSIONAL STATE [None]
  - AMNESIA [None]
  - DECREASED APPETITE [None]
  - TEMPERATURE INTOLERANCE [None]
  - LETHARGY [None]
  - SCRATCH [None]
  - WEIGHT DECREASED [None]
  - IMPAIRED DRIVING ABILITY [None]
  - AGITATION [None]
  - BALANCE DISORDER [None]
  - OVERDOSE [None]
  - PRODUCT SUBSTITUTION ISSUE [None]
  - PHOTOSENSITIVITY REACTION [None]
  - TREMOR [None]
